FAERS Safety Report 4636770-7 (Version None)
Quarter: 2005Q2

REPORT INFORMATION
  Report Type: 
  Country: None (occurrence: None)
  Receive Date: 20050414
  Receipt Date: 20050330
  Transmission Date: 20051028
  Serious: Yes (Death, Other)
  Sender: FDA-Public Use
  Company Number: P200400006

PATIENT
  Age: 82 Year
  Sex: Male
  Weight: 73.9 kg

DRUGS (8)
  1. PLENAXIS [Suspect]
     Indication: PROSTATE CANCER METASTATIC
     Dosage: 100 MG, SINGLE, INTRAMUSCULAR
     Route: 030
     Dates: start: 20040713, end: 20040713
  2. DIGOXIN [Concomitant]
  3. POTASSIUM W/SODIUM CHLORIDE (POTASSIUM, SODIUM CHLORIDE) [Concomitant]
  4. VASOTEC [Concomitant]
  5. LASIX [Concomitant]
  6. COUMADIN [Concomitant]
  7. LOPRESSOR [Concomitant]
  8. ACIPHEX [Concomitant]

REACTIONS (10)
  - ASTHENIA [None]
  - BLADDER DISTENSION [None]
  - COMA [None]
  - CONFUSIONAL STATE [None]
  - DECREASED APPETITE [None]
  - DYSPNOEA [None]
  - DYSURIA [None]
  - PALLOR [None]
  - VENTRICULAR TACHYCARDIA [None]
  - WEIGHT DECREASED [None]
